FAERS Safety Report 15049774 (Version 1)
Quarter: 2018Q2

REPORT INFORMATION
  Report Type: Spontaneous
  Country: DE (occurrence: DE)
  Receive Date: 20180622
  Receipt Date: 20180622
  Transmission Date: 20180711
  Serious: Yes (Death, Life-Threatening, Hospitalization, Other)
  Sender: FDA-Public Use
  Company Number: DE-GLENMARK PHARMACEUTICALS-2018GMK036134

PATIENT
  Sex: Male

DRUGS (6)
  1. METAMIZOLE [Suspect]
     Active Substance: METAMIZOLE
     Indication: ANALGESIC THERAPY
     Dosage: 1 G, QID (EVERY 6 HOURS)
     Route: 065
  2. PANTOPRAZOLE [Concomitant]
     Active Substance: PANTOPRAZOLE
     Indication: GASTRITIS PROPHYLAXIS
     Dosage: 40 MG, OD (1-0-0)
     Route: 065
  3. DICLOFENAC SODIUM. [Suspect]
     Active Substance: DICLOFENAC SODIUM
     Indication: PROPHYLAXIS
     Dosage: 50 MG, BID (EVERY 12 HOURS) (1-0-1)
     Route: 065
  4. RAMIPRIL/HYDROCHLOORTHIAZIDE [Suspect]
     Active Substance: HYDROCHLOROTHIAZIDE\RAMIPRIL
     Dosage: 0.5 DF, OD (1-0-0.5)
     Route: 065
  5. BISOPROLOL [Concomitant]
     Active Substance: BISOPROLOL
     Indication: PRODUCT USED FOR UNKNOWN INDICATION
     Dosage: 2.5 MG, OD (1-0-0)
     Route: 065
  6. RAMIPRIL/HYDROCHLOORTHIAZIDE [Suspect]
     Active Substance: HYDROCHLOROTHIAZIDE\RAMIPRIL
     Indication: PRODUCT USED FOR UNKNOWN INDICATION
     Dosage: 1 DF, OD (1-0-0.5)
     Route: 065

REACTIONS (6)
  - Agranulocytosis [Fatal]
  - Renal impairment [Fatal]
  - Septic shock [Fatal]
  - Multiple organ dysfunction syndrome [Fatal]
  - Platelet function test abnormal [Fatal]
  - Hepatic function abnormal [Fatal]
